FAERS Safety Report 5213464-0 (Version None)
Quarter: 2007Q1

REPORT INFORMATION
  Report Type: 
  Country: None (occurrence: None)
  Receive Date: 20070119
  Receipt Date: 20070117
  Transmission Date: 20070707
  Serious: Yes (Death)
  Sender: FDA-Public Use
  Company Number: KR-SANOFI-SYNTHELABO-F01200700059

PATIENT
  Sex: Female
  Weight: 40 kg

DRUGS (2)
  1. FLUOROURACIL [Concomitant]
     Dates: start: 20050824, end: 20050825
  2. ELOXATIN [Suspect]
     Route: 042
     Dates: start: 20050824, end: 20050824

REACTIONS (1)
  - NEUTROPENIA [None]
